FAERS Safety Report 9884253 (Version 1)
Quarter: 2014Q1

REPORT INFORMATION
  Report Type: Spontaneous
  Country: US (occurrence: US)
  Receive Date: 20140210
  Receipt Date: 20140210
  Transmission Date: 20141002
  Serious: No
  Sender: FDA-Public Use
  Company Number: US-ALLERGAN-1315523US

PATIENT
  Age: 17 Year
  Sex: Female

DRUGS (4)
  1. BOTOX [Suspect]
     Indication: BASILAR MIGRAINE
     Dosage: UNK, SINGLE
     Route: 030
     Dates: start: 201308, end: 201308
  2. BOTOX [Suspect]
     Dosage: UNK
     Route: 030
     Dates: start: 201305, end: 201305
  3. LYRICA [Concomitant]
     Indication: PRODUCT USED FOR UNKNOWN INDICATION
  4. ANTI-INFLAMMATORY NOS [Concomitant]
     Indication: HEADACHE

REACTIONS (5)
  - Somnolence [Recovered/Resolved]
  - Off label use [Unknown]
  - Injection site pain [Unknown]
  - Injection site pain [Recovered/Resolved]
  - Therapeutic response decreased [Unknown]
